FAERS Safety Report 7161275-1 (Version None)
Quarter: 2010Q4

REPORT INFORMATION
  Report Type: 
  Country: None (occurrence: None)
  Receive Date: 20101215
  Receipt Date: 20101208
  Transmission Date: 20110411
  Serious: Yes (Hospitalization, Other)
  Sender: FDA-Public Use
  Company Number: IE-AMGEN-IRLSP2010006104

PATIENT

DRUGS (3)
  1. ARANESP [Suspect]
     Indication: PERITONEAL DIALYSIS
     Dosage: 20 A?G, QWK
     Route: 058
     Dates: start: 20100617, end: 20100715
  2. ARANESP [Suspect]
     Dosage: 40 A?G, QWK
     Route: 058
     Dates: start: 20100715, end: 20100729
  3. ARANESP [Suspect]
     Dosage: 80 A?G, UNK
     Route: 058
     Dates: start: 20100729

REACTIONS (4)
  - DRUG INEFFECTIVE [None]
  - HAEMOGLOBIN DECREASED [None]
  - HOSPITALISATION [None]
  - VAGINAL HAEMORRHAGE [None]
